FAERS Safety Report 9623638 (Version 6)
Quarter: 2013Q4

REPORT INFORMATION
  Report Type: Report from Study
  Country: US (occurrence: US)
  Receive Date: 20131015
  Receipt Date: 20131217
  Transmission Date: 20140711
  Serious: Yes (Death, Hospitalization)
  Sender: FDA-Public Use
  Company Number: US-ACTELION-A-US2013-88555

PATIENT
  Age: 63 Year
  Sex: Female

DRUGS (12)
  1. VENTAVIS [Suspect]
     Indication: PULMONARY ARTERIAL HYPERTENSION
     Dosage: UNK
     Route: 055
     Dates: end: 201311
  2. TRACLEER [Suspect]
     Indication: PULMONARY ARTERIAL HYPERTENSION
     Dosage: UNK
     Route: 048
     Dates: start: 20130705, end: 20130718
  3. SILDENAFIL [Concomitant]
  4. ACETAMINOPHEN [Concomitant]
  5. DIGOXIN [Concomitant]
  6. TORSEMIDE [Concomitant]
  7. POTASSIUM [Concomitant]
  8. LISINOPRIL [Concomitant]
  9. SIMVASTATIN [Concomitant]
  10. ADVAIR [Concomitant]
  11. ALBUTEROL [Concomitant]
  12. SPIRIVA [Concomitant]

REACTIONS (37)
  - Cardiac failure [Fatal]
  - Cardiac arrest [Fatal]
  - Acidosis [Fatal]
  - Renal failure chronic [Fatal]
  - Cardiac failure congestive [Fatal]
  - Syncope [Not Recovered/Not Resolved]
  - Fluid overload [Recovering/Resolving]
  - Pulmonary oedema [Recovering/Resolving]
  - Right ventricular failure [Unknown]
  - Cardiac failure congestive [Not Recovered/Not Resolved]
  - Dyspnoea [Recovering/Resolving]
  - Chest discomfort [Recovering/Resolving]
  - Fluid retention [Recovering/Resolving]
  - Oedema peripheral [Recovering/Resolving]
  - Dysphonia [Unknown]
  - Drug dose omission [Unknown]
  - Headache [Unknown]
  - Cough [Unknown]
  - Throat irritation [Unknown]
  - Asthenia [Unknown]
  - Fatigue [Unknown]
  - Dyspnoea exertional [Unknown]
  - Exercise tolerance decreased [Unknown]
  - Orthopnoea [Unknown]
  - Arthralgia [Unknown]
  - Myalgia [Unknown]
  - Bone pain [Unknown]
  - Unresponsive to stimuli [Fatal]
  - Dyspnoea [Unknown]
  - Pulse absent [Fatal]
  - Ventricular fibrillation [Fatal]
  - Dizziness [Unknown]
  - Presyncope [Unknown]
  - Joint range of motion decreased [Unknown]
  - Muscular weakness [Unknown]
  - Chest pain [Unknown]
  - Acute respiratory failure [Fatal]
